FAERS Safety Report 16654401 (Version 1)
Quarter: 2019Q3

REPORT INFORMATION
  Report Type: Spontaneous
  Country: IT (occurrence: IT)
  Receive Date: 20190731
  Receipt Date: 20190731
  Transmission Date: 20191004
  Serious: Yes (Other)
  Sender: FDA-Public Use
  Company Number: IT-TEVA-2019-IT-1085713

PATIENT
  Age: 50 Year
  Sex: Female

DRUGS (3)
  1. TAMOXIFEN CITRATE. [Suspect]
     Active Substance: TAMOXIFEN CITRATE
     Indication: ADENOCARCINOMA
     Route: 048
     Dates: start: 20181031, end: 20190401
  2. EUTIROX [Concomitant]
     Active Substance: LEVOTHYROXINE SODIUM
  3. XELODA [Suspect]
     Active Substance: CAPECITABINE
     Indication: ADENOCARCINOMA
     Route: 030
     Dates: start: 20181031, end: 20190401

REACTIONS (1)
  - Syncope [Recovering/Resolving]

NARRATIVE: CASE EVENT DATE: 20190401
